FAERS Safety Report 8002014-1 (Version None)
Quarter: 2011Q4

REPORT INFORMATION
  Report Type: 
  Country: None (occurrence: None)
  Receive Date: 20111220
  Receipt Date: 20111206
  Transmission Date: 20120403
  Serious: Yes (Hospitalization)
  Sender: FDA-Public Use
  Company Number: 2011SGN00343

PATIENT
  Age: 18 Year
  Sex: Female
  Weight: 61.8 kg

DRUGS (5)
  1. VINBLASTINE SULFATE [Suspect]
     Indication: HODGKIN'S DISEASE
     Dosage: 6 MG/M2, Q14D, INTRAVENOUS
     Route: 042
     Dates: start: 20111104, end: 20111118
  2. BLEOMYCIN SULFATE [Suspect]
     Indication: HODGKIN'S DISEASE
  3. DACARBAZINE [Suspect]
     Indication: HODGKIN'S DISEASE
     Dosage: 375 MG/M2, Q14D
     Dates: start: 20111104, end: 20111118
  4. BRENTUXIMAB VEDOTIN (BRENTUXIMAB VEDOTIN) INJECTION [Suspect]
     Indication: HODGKIN'S DISEASE
     Dosage: 1.2 MG/KG, Q14D, INTRAVENOUS
     Route: 042
     Dates: start: 20111104, end: 20111118
  5. DOXORUBICIN (DOXORUBICIN HYDROHCHLORIDE) [Concomitant]
     Indication: HODGKIN'S DISEASE
     Dosage: 25 MG/M2, Q14D, INTRAVENOUS
     Route: 042
     Dates: start: 20111104, end: 20111118

REACTIONS (2)
  - FEBRILE NEUTROPENIA [None]
  - OROPHARYNGEAL PAIN [None]
